FAERS Safety Report 8072584-6 (Version None)
Quarter: 2012Q1

REPORT INFORMATION
  Report Type: 
  Country: None (occurrence: None)
  Receive Date: 20120123
  Receipt Date: 20120109
  Transmission Date: 20120608
  Serious: Yes (Other)
  Sender: FDA-Public Use
  Company Number: 2012P1002656

PATIENT
  Age: 73 Year
  Sex: Female

DRUGS (9)
  1. CETUXIMAB [Concomitant]
  2. MITOMYCIN [Suspect]
     Indication: SQUAMOUS CELL CARCINOMA
     Dosage: 10;8;50 MG/M^2;Q3W
     Dates: start: 20060701
  3. MITOMYCIN [Suspect]
     Indication: ANAL CANCER
     Dosage: 10;8;50 MG/M^2;Q3W
     Dates: start: 20060701
  4. MITOMYCIN [Suspect]
     Indication: SQUAMOUS CELL CARCINOMA
     Dosage: 10;8;50 MG/M^2;Q3W
     Dates: start: 20110101, end: 20111101
  5. MITOMYCIN [Suspect]
     Indication: ANAL CANCER
     Dosage: 10;8;50 MG/M^2;Q3W
     Dates: start: 20110101, end: 20111101
  6. MITOMYCIN [Suspect]
     Indication: SQUAMOUS CELL CARCINOMA
     Dosage: 10;8;50 MG/M^2;Q3W
     Dates: start: 20060401, end: 20060101
  7. MITOMYCIN [Suspect]
     Indication: ANAL CANCER
     Dosage: 10;8;50 MG/M^2;Q3W
     Dates: start: 20060401, end: 20060101
  8. RPEDNISONE [Concomitant]
  9. FLUOROURACIL [Concomitant]

REACTIONS (7)
  - BONE MARROW FAILURE [None]
  - SQUAMOUS CELL CARCINOMA [None]
  - NEOPLASM RECURRENCE [None]
  - NEOPLASM PROGRESSION [None]
  - TOXICITY TO VARIOUS AGENTS [None]
  - THROMBOTIC THROMBOCYTOPENIC PURPURA [None]
  - HAEMOLYTIC URAEMIC SYNDROME [None]
